FAERS Safety Report 5380156-7 (Version None)
Quarter: 2007Q3

REPORT INFORMATION
  Report Type: 
  Country: None (occurrence: None)
  Receive Date: 20070706
  Receipt Date: 20070504
  Transmission Date: 20080115
  Serious: No
  Sender: FDA-Public Use
  Company Number: A0649959A

PATIENT
  Age: 47 Year
  Sex: Female

DRUGS (4)
  1. TYKERB [Suspect]
     Indication: BREAST CANCER
     Dosage: 1250MG PER DAY
     Route: 048
  2. HERCEPTIN [Concomitant]
  3. XELODA [Concomitant]
  4. COREG [Concomitant]

REACTIONS (1)
  - MOUTH ULCERATION [None]
